FAERS Safety Report 13634293 (Version 2)
Quarter: 2017Q3

REPORT INFORMATION
  Report Type: Spontaneous
  Country: US (occurrence: US)
  Receive Date: 20170609
  Receipt Date: 20170704
  Transmission Date: 20171127
  Serious: No
  Sender: FDA-Public Use
  Company Number: US-ASTRAZENECA-2017SE60428

PATIENT
  Age: 57 Year
  Sex: Female
  Weight: 81.6 kg

DRUGS (2)
  1. BYDUREON [Suspect]
     Active Substance: EXENATIDE
     Indication: TYPE 2 DIABETES MELLITUS
     Route: 058
     Dates: start: 2016
  2. WARFARIN [Concomitant]
     Active Substance: WARFARIN
     Indication: ANTICOAGULANT THERAPY
     Route: 048

REACTIONS (7)
  - Prothrombin time ratio abnormal [Unknown]
  - Product quality issue [Unknown]
  - International normalised ratio fluctuation [Unknown]
  - Injection site irritation [Recovered/Resolved with Sequelae]
  - Wrong technique in product usage process [Unknown]
  - Injection site discomfort [Recovered/Resolved with Sequelae]
  - Contusion [Unknown]

NARRATIVE: CASE EVENT DATE: 2016
